FAERS Safety Report 5431003-6 (Version None)
Quarter: 2007Q3

REPORT INFORMATION
  Report Type: 
  Country: None (occurrence: None)
  Receive Date: 20070830
  Receipt Date: 20070828
  Transmission Date: 20080115
  Serious: Yes (Hospitalization, Other)
  Sender: FDA-Public Use
  Company Number: B0484726A

PATIENT
  Age: 52 Year
  Sex: Male
  Weight: 62 kg

DRUGS (3)
  1. PAXIL [Suspect]
     Indication: OBSESSIVE-COMPULSIVE DISORDER
     Route: 048
     Dates: start: 20070125, end: 20070405
  2. ARIPIPRAZOLE [Concomitant]
     Route: 065
  3. RISPERDAL [Concomitant]
     Route: 065

REACTIONS (7)
  - AGGRESSION [None]
  - ANXIETY [None]
  - DRUG WITHDRAWAL SYNDROME [None]
  - INSOMNIA [None]
  - IRRITABILITY [None]
  - PERSECUTORY DELUSION [None]
  - THINKING ABNORMAL [None]
